FAERS Safety Report 6542675-7 (Version None)
Quarter: 2010Q1

REPORT INFORMATION
  Report Type: 
  Country: None (occurrence: None)
  Receive Date: 20100119
  Receipt Date: 20100112
  Transmission Date: 20100710
  Serious: Yes (Death)
  Sender: FDA-Public Use
  Company Number: US-GILEAD-2010-0026312

PATIENT
  Sex: Female
  Weight: 49.94 kg

DRUGS (18)
  1. LETAIRIS [Suspect]
     Indication: PULMONARY ARTERIAL HYPERTENSION
     Route: 048
     Dates: start: 20090428, end: 20091230
  2. COUMADIN [Concomitant]
  3. LASIX [Concomitant]
  4. ENBREL [Concomitant]
  5. OXYGEN [Concomitant]
  6. PULMICORT [Concomitant]
  7. PHENOBARBITAL TAB [Concomitant]
  8. MEGACE [Concomitant]
  9. NYSTATIN [Concomitant]
  10. PREDNISONE [Concomitant]
  11. PERFOROMIST [Concomitant]
  12. NITROLINGUAL [Concomitant]
  13. FOLIC ACID [Concomitant]
  14. METHOTREXATE [Concomitant]
  15. TYLENOL W/ CODEINE [Concomitant]
  16. DILANTIN [Concomitant]
  17. GLUCOPHAGE [Concomitant]
  18. ASPIRIN [Concomitant]

REACTIONS (1)
  - CARDIAC FAILURE [None]
